FAERS Safety Report 8548270-2 (Version None)
Quarter: 2012Q3

REPORT INFORMATION
  Report Type: 
  Country: None (occurrence: None)
  Receive Date: 20120719
  Receipt Date: 20120719
  Transmission Date: 20120928
  Serious: No
  Sender: FDA-Public Use
  Company Number: None

PATIENT
  Sex: Female
  Weight: 72.5755 kg

DRUGS (5)
  1. EPNAL 500 MG BID [Suspect]
     Indication: BIPOLAR DISORDER
     Dosage: EPNAL 500 MG TWICE DAILY ORAL
     Route: 048
     Dates: start: 19940101, end: 20120101
  2. CELEXA [Concomitant]
  3. LIPITOR [Concomitant]
  4. RISPERDAL [Suspect]
     Indication: MENTAL DISORDER
     Dosage: 2 MG FOR 18 YRS DAILY ORAL
     Route: 048
     Dates: start: 19940101, end: 20120101
  5. DETROL [Concomitant]

REACTIONS (6)
  - DIABETES MELLITUS [None]
  - POLYDIPSIA [None]
  - WEIGHT INCREASED [None]
  - URINARY INCONTINENCE [None]
  - HYPERSOMNIA [None]
  - SOMNOLENCE [None]
